FAERS Safety Report 4503940-8 (Version None)
Quarter: 2004Q3

REPORT INFORMATION
  Report Type: 
  Country: None (occurrence: None)
  Receive Date: 20040928
  Receipt Date: 20040614
  Transmission Date: 20050211
  Serious: No
  Sender: FDA-Public Use
  Company Number: 04P-163-0264147-00

PATIENT
  Age: 74 Year
  Sex: Female
  Weight: 52.1637 kg

DRUGS (3)
  1. HUMIRA [Suspect]
     Indication: RHEUMATOID ARTHRITIS
     Dosage: 40 MG 1 IN 2 WK PER ORAL
     Route: 048
     Dates: start: 20031201
  2. HYDROXYCHLOROQUINE PHOSPHATE [Concomitant]
  3. MULTI-VITAMINS [Concomitant]

REACTIONS (2)
  - INJECTION SITE EXTRAVASATION [None]
  - INJECTION SITE RASH [None]
